FAERS Safety Report 15841084 (Version 1)
Quarter: 2019Q1

REPORT INFORMATION
  Report Type: Spontaneous
  Country: US (occurrence: US)
  Receive Date: 20190118
  Receipt Date: 20190118
  Transmission Date: 20190417
  Serious: Yes (Hospitalization, Other)
  Sender: FDA-Public Use
  Company Number: US-ACCORD-101993

PATIENT
  Sex: Female

DRUGS (1)
  1. OXYBUTYNIN/OXYBUTYNIN HYDROCHLORIDE [Suspect]
     Active Substance: OXYBUTYNIN
     Indication: INCONTINENCE
     Dosage: 5 MG ORAL QD
     Route: 048
     Dates: start: 20180601, end: 20180606

REACTIONS (5)
  - Dizziness postural [Recovered/Resolved]
  - Photophobia [Recovered/Resolved]
  - Vestibular neuronitis [Recovered/Resolved]
  - Dysphagia [Recovered/Resolved]
  - Drug ineffective [Unknown]
